FAERS Safety Report 8186431-5 (Version None)
Quarter: 2012Q1

REPORT INFORMATION
  Report Type: 
  Country: None (occurrence: None)
  Receive Date: 20120305
  Receipt Date: 20120305
  Transmission Date: 20120608
  Serious: No
  Sender: FDA-Public Use
  Company Number: None

PATIENT
  Sex: Female

DRUGS (2)
  1. EYLEA [Suspect]
     Indication: MACULAR DEGENERATION
     Dosage: ONE VIAL Q MONTH INTRA VITREOUS
     Route: 042
     Dates: start: 20120221
  2. EYLEA [Suspect]
     Indication: MACULAR DEGENERATION
     Dosage: ONE VIAL Q MONTH INTRA VITREOUS
     Route: 042
     Dates: start: 20120121

REACTIONS (4)
  - COGNITIVE DISORDER [None]
  - MIGRAINE WITH AURA [None]
  - HEADACHE [None]
  - PAIN [None]
